FAERS Safety Report 8835722 (Version 1)
Quarter: 2012Q4

REPORT INFORMATION
  Report Type: 
  Country: NL (occurrence: NL)
  Receive Date: 20121011
  Receipt Date: 20121011
  Transmission Date: 20130627
  Serious: Yes (Other)
  Sender: FDA-Public Use
  Company Number: NL-ABBOTT-12P-114-0993681-00

PATIENT
  Age: 48 Year
  Sex: Female

DRUGS (12)
  1. VALPROIC ACID [Suspect]
     Indication: NASOPHARYNGEAL CANCER
     Dosage: 1.25mg/kg daily
     Route: 048
  2. VALPROIC ACID [Suspect]
     Dosage: 1.25mg/kg daily
     Route: 048
  3. VALPROIC ACID [Suspect]
     Dosage: 12.5mg/kg daily
     Route: 048
  4. VALPROIC ACID [Suspect]
     Dosage: 12.5mg/kg daily
     Route: 048
  5. GEMCITABINE [Suspect]
     Indication: NASOPHARYNGEAL CANCER
     Dosage: 1250mg/square meter
     Route: 042
  6. GEMCITABINE [Suspect]
     Dosage: 625mg/square meter
     Route: 042
  7. GEMCITABINE [Suspect]
     Dosage: 625mg/square meter
     Route: 042
  8. GEMCITABINE [Suspect]
     Dosage: 625mg/square meter
     Route: 042
  9. GANCICLOVIR [Suspect]
     Indication: NASOPHARYNGEAL CANCER
     Dosage: 1350mg daily
     Route: 048
  10. GANCICLOVIR [Suspect]
     Dosage: 1350mg daily
     Route: 048
  11. GANCICLOVIR [Suspect]
     Dosage: 1350mg daily
     Route: 048
  12. GANCICLOVIR [Suspect]
     Dosage: 1350mg daily
     Route: 048

REACTIONS (2)
  - Haemoglobin decreased [Unknown]
  - Platelet count decreased [Unknown]
